FAERS Safety Report 18270203 (Version 13)
Quarter: 2022Q2

REPORT INFORMATION
  Report Type: Spontaneous
  Country: US (occurrence: US)
  Receive Date: 20200915
  Receipt Date: 20220407
  Transmission Date: 20220720
  Serious: Yes (Other)
  Sender: FDA-Public Use
  Company Number: US-PFIZER INC-2020179026

PATIENT
  Age: 79 Year
  Sex: Female
  Weight: 72.57 kg

DRUGS (4)
  1. IBRANCE [Suspect]
     Active Substance: PALBOCICLIB
     Indication: Breast cancer stage IV
     Dosage: 75 MG
  2. IBRANCE [Suspect]
     Active Substance: PALBOCICLIB
     Dosage: 125 MG
  3. IBRANCE [Suspect]
     Active Substance: PALBOCICLIB
     Dosage: 125 MG, 1X/DAY
  4. FULVESTRANT [Suspect]
     Active Substance: FULVESTRANT
     Indication: Breast cancer metastatic
     Dosage: 125 MG, 1X/DAY

REACTIONS (15)
  - Fractured sacrum [Unknown]
  - Sinusitis [Unknown]
  - Foot deformity [Unknown]
  - Oral surgery [Unknown]
  - Product dose omission issue [Unknown]
  - Malaise [Unknown]
  - Alopecia [Not Recovered/Not Resolved]
  - Decreased appetite [Recovering/Resolving]
  - Hypogeusia [Recovering/Resolving]
  - Feeling abnormal [Unknown]
  - Weight decreased [Unknown]
  - Fatigue [Unknown]
  - Pain [Unknown]
  - Arthritis [Unknown]
  - Neoplasm progression [Unknown]
